FAERS Safety Report 8338300-5 (Version None)
Quarter: 2012Q2

REPORT INFORMATION
  Report Type: 
  Country: None (occurrence: None)
  Receive Date: 20120504
  Receipt Date: 20120424
  Transmission Date: 20120825
  Serious: Yes (Death, Hospitalization)
  Sender: FDA-Public Use
  Company Number: BE-ACTELION-A-CH2012-64594

PATIENT
  Sex: Female
  Weight: 46 kg

DRUGS (3)
  1. ASPIRIN [Concomitant]
     Dosage: 100 MG, OD
     Dates: start: 20061101
  2. TRACLEER [Suspect]
     Indication: PULMONARY ARTERIAL HYPERTENSION
     Dosage: 31.25 MG, BID
     Route: 048
     Dates: start: 20061001, end: 20061101
  3. TRACLEER [Suspect]
     Dosage: 62.5 MG, BID
     Route: 048
     Dates: start: 20061101, end: 20070801

REACTIONS (9)
  - PYREXIA [None]
  - BRAIN DEATH [None]
  - APATHY [None]
  - PARADOXICAL EMBOLISM [None]
  - CHILLS [None]
  - PUPILS UNEQUAL [None]
  - BRAIN ABSCESS [None]
  - VOMITING [None]
  - ISCHAEMIC CEREBRAL INFARCTION [None]
